FAERS Safety Report 6507659-3 (Version None)
Quarter: 2009Q4

REPORT INFORMATION
  Report Type: 
  Country: None (occurrence: None)
  Receive Date: 20091221
  Receipt Date: 20091211
  Transmission Date: 20100525
  Serious: Yes (Death, Hospitalization, Other)
  Sender: FDA-Public Use
  Company Number: PHHY2008JP27448

PATIENT
  Age: 27 Year
  Sex: Female
  Weight: 45 kg

DRUGS (5)
  1. NEORAL [Suspect]
     Indication: SYSTEMIC LUPUS ERYTHEMATOSUS
     Dosage: 150 MG/DAY
     Route: 048
     Dates: start: 20060401, end: 20070501
  2. ENDOXAN [Concomitant]
     Indication: SYSTEMIC LUPUS ERYTHEMATOSUS
     Dosage: UNK
     Dates: start: 20030901
  3. BREDININ [Concomitant]
     Indication: SYSTEMIC LUPUS ERYTHEMATOSUS
     Dosage: UNK
     Route: 048
     Dates: start: 20000101
  4. CYCLOPHOSPHAMIDE [Concomitant]
     Indication: SYSTEMIC LUPUS ERYTHEMATOSUS
     Dosage: 12 TIMES OF 400 MG/BODY BIWEEKLY
  5. PREDNISOLONE [Concomitant]

REACTIONS (18)
  - ALOPECIA [None]
  - CENTRAL NERVOUS SYSTEM NECROSIS [None]
  - CEREBELLAR SYNDROME [None]
  - DIPLOPIA [None]
  - DYSKINESIA [None]
  - FALL [None]
  - GAIT DISTURBANCE [None]
  - HEMIPARESIS [None]
  - HYPERREFLEXIA [None]
  - HYPOAESTHESIA [None]
  - JC VIRUS INFECTION [None]
  - MUSCULAR WEAKNESS [None]
  - NYSTAGMUS [None]
  - PROGRESSIVE MULTIFOCAL LEUKOENCEPHALOPATHY [None]
  - RESPIRATORY FAILURE [None]
  - SENSORY LOSS [None]
  - SPEECH DISORDER [None]
  - VERTIGO [None]
